FAERS Safety Report 8665845 (Version 2)
Quarter: 2013Q4

REPORT INFORMATION
  Report Type: Report from Study
  Country: JP (occurrence: JP)
  Receive Date: 20120716
  Receipt Date: 20131101
  Transmission Date: 20140711
  Serious: Yes (Hospitalization)
  Sender: FDA-Public Use
  Company Number: JP-MSD-1207JPN001801

PATIENT
  Age: 66 Year
  Sex: Female

DRUGS (6)
  1. PEGINTRON [Suspect]
     Indication: HEPATITIS C
     Dosage: 80 MICROGRAM, QW
     Route: 058
     Dates: start: 20120612, end: 20120618
  2. PEGINTRON [Suspect]
     Dosage: UNK
     Route: 058
     Dates: start: 20120625
  3. REBETOL [Suspect]
     Indication: HEPATITIS C
     Dosage: 600 MG, QD
     Route: 048
     Dates: start: 20120612, end: 20120618
  4. REBETOL [Suspect]
     Dosage: UNK
     Route: 048
     Dates: start: 20120625
  5. TELAPREVIR [Suspect]
     Indication: HEPATITIS C
     Dosage: 1500 MG, QD
     Route: 048
     Dates: start: 20120612, end: 20120618
  6. TELAPREVIR [Suspect]
     Dosage: UNK
     Dates: start: 20120625

REACTIONS (1)
  - Rash [Recovered/Resolved]
